FAERS Safety Report 13376973 (Version 1)
Quarter: 2017Q1

REPORT INFORMATION
  Report Type: Spontaneous
  Country: US (occurrence: US)
  Receive Date: 20170328
  Receipt Date: 20170328
  Transmission Date: 20170429
  Serious: No
  Sender: FDA-Public Use
  Company Number: US-PERRIGO-16US015286

PATIENT
  Age: 39 Year
  Sex: Female
  Weight: 70.3 kg

DRUGS (5)
  1. LORATADINE AND PSEUDOEPHEDRINE SULFATE [Suspect]
     Active Substance: LORATADINE\PSEUDOEPHEDRINE SULFATE
     Indication: THROAT IRRITATION
     Dosage: ONE TABLET, EVERY EIGHT HOURS, UP TO TWICE DAILY
     Route: 048
     Dates: start: 20160412, end: 20160415
  2. CYMBALTA [Suspect]
     Active Substance: DULOXETINE HYDROCHLORIDE
     Indication: BIPOLAR I DISORDER
  3. LORATADINE AND PSEUDOEPHEDRINE SULFATE [Suspect]
     Active Substance: LORATADINE\PSEUDOEPHEDRINE SULFATE
     Indication: RHINORRHOEA
  4. CYMBALTA [Suspect]
     Active Substance: DULOXETINE HYDROCHLORIDE
     Indication: OBSESSIVE-COMPULSIVE DISORDER
     Dosage: 30 MG, QD
     Route: 048
     Dates: start: 20160325
  5. CYMBALTA [Suspect]
     Active Substance: DULOXETINE HYDROCHLORIDE
     Indication: BIPOLAR DISORDER

REACTIONS (7)
  - Inappropriate schedule of drug administration [Recovered/Resolved]
  - Insomnia [Unknown]
  - Nervousness [Unknown]
  - Drug effect incomplete [Unknown]
  - Depression [Unknown]
  - Anxiety [Unknown]
  - Drug interaction [Unknown]

NARRATIVE: CASE EVENT DATE: 20160412
